FAERS Safety Report 9696773 (Version 1)
Quarter: 2013Q4

REPORT INFORMATION
  Report Type: Spontaneous
  Country: US (occurrence: US)
  Receive Date: 20131119
  Receipt Date: 20131119
  Transmission Date: 20140711
  Serious: Yes (Other)
  Sender: FDA-Public Use
  Company Number: US-ELI_LILLY_AND_COMPANY-US201311003145

PATIENT
  Age: 57 Year
  Sex: Male

DRUGS (1)
  1. HUMALOG LISPRO [Suspect]
     Indication: DIABETES MELLITUS
     Dosage: UNK
     Route: 065

REACTIONS (6)
  - Leg amputation [Unknown]
  - Neuropathy peripheral [Unknown]
  - Injection site haemorrhage [Unknown]
  - Expired drug administered [Unknown]
  - Incorrect product storage [Unknown]
  - Injury associated with device [Recovered/Resolved]
